FAERS Safety Report 21494144 (Version 1)
Quarter: 2022Q4

REPORT INFORMATION
  Report Type: Spontaneous
  Country: None (occurrence: PT)
  Receive Date: 20221021
  Receipt Date: 20221021
  Transmission Date: 20230112
  Serious: Yes (Other)
  Sender: FDA-Public Use
  Company Number: PT-B.Braun Medical Inc.-2134095

PATIENT
  Age: 56 Year
  Sex: Female

DRUGS (11)
  1. CEFAZOLIN [Suspect]
     Active Substance: CEFAZOLIN
  2. PROPOFOL [Suspect]
     Active Substance: PROPOFOL
  3. FENTANYL [Suspect]
     Active Substance: FENTANYL
  4. HYDROCORTISONE [Suspect]
     Active Substance: HYDROCORTISONE
  5. DEXAMETHASONE [Suspect]
     Active Substance: DEXAMETHASONE
  6. CEFAZOLIN SODIUM [Suspect]
     Active Substance: CEFAZOLIN SODIUM
  7. BACLOFEN [Concomitant]
     Active Substance: BACLOFEN
  8. LISINOPRIL [Concomitant]
     Active Substance: LISINOPRIL
  9. SIMVASTATIN [Concomitant]
     Active Substance: SIMVASTATIN
  10. LERCANIDIPINE [Concomitant]
     Active Substance: LERCANIDIPINE
  11. AMITRIPTYLINE HYDROCHLORIDE [Concomitant]
     Active Substance: AMITRIPTYLINE HYDROCHLORIDE

REACTIONS (3)
  - Lip oedema [Recovered/Resolved]
  - Tachycardia [Recovered/Resolved]
  - Hypotension [Recovered/Resolved]
